FAERS Safety Report 9671252 (Version 1)
Quarter: 2013Q4

REPORT INFORMATION
  Report Type: Spontaneous
  Country: US (occurrence: None)
  Receive Date: 20131105
  Receipt Date: 20131105
  Transmission Date: 20140711
  Serious: Yes (Other)
  Sender: FDA-Public Use
  Company Number: None

PATIENT
  Age: 40 Year
  Sex: Female
  Weight: 78.02 kg

DRUGS (1)
  1. LEVAQUIN [Suspect]
     Indication: BRONCHITIS
     Dosage: TAKEN BY MOUTH
     Dates: start: 20131024, end: 20131025

REACTIONS (13)
  - Pruritus [None]
  - Rash [None]
  - Dyspnoea [None]
  - Hot flush [None]
  - Arthralgia [None]
  - Myalgia [None]
  - Nausea [None]
  - Dizziness [None]
  - Dysgeusia [None]
  - Asthenia [None]
  - Hypoaesthesia [None]
  - Candida infection [None]
  - Vulvovaginal mycotic infection [None]
